FAERS Safety Report 19300731 (Version 6)
Quarter: 2021Q3

REPORT INFORMATION
  Report Type: Spontaneous
  Country: US (occurrence: US)
  Receive Date: 20210524
  Receipt Date: 20210902
  Transmission Date: 20211014
  Serious: Yes (Hospitalization, Other)
  Sender: FDA-Public Use
  Company Number: US-TEVA-2021-US-1915774

PATIENT
  Age: 55 Year
  Sex: Female
  Weight: 106.69 kg

DRUGS (16)
  1. VALSARTAN ACTAVIS [Suspect]
     Active Substance: VALSARTAN
     Indication: HYPERTENSION
     Route: 048
     Dates: start: 20160125, end: 20160324
  2. VALSARTAN CAMBER [Suspect]
     Active Substance: VALSARTAN
     Indication: HYPERTENSION
     Route: 048
     Dates: start: 20160507, end: 20171110
  3. VALSARTAN RANBAXY [Suspect]
     Active Substance: VALSARTAN
     Indication: HYPERTENSION
     Route: 048
  4. OMEGA 3 [Concomitant]
     Active Substance: OMEGA-3 FATTY ACIDS
     Route: 065
  5. VALSARTAN MYLAN [Suspect]
     Active Substance: VALSARTAN
     Indication: HYPERTENSION
     Route: 048
     Dates: start: 20180305, end: 20180404
  6. CLONAZEPAM. [Concomitant]
     Active Substance: CLONAZEPAM
     Indication: ANXIETY
     Dosage: 1/2 TO 1 DF, BID, PRN
     Route: 048
     Dates: start: 20140401
  7. AMPHETAMINE?DEXTROAMPHETAMINE [Concomitant]
     Active Substance: AMPHETAMINE SULFATE\DEXTROAMPHETAMINE
     Route: 048
     Dates: start: 20130719
  8. EPIPEN [Concomitant]
     Active Substance: EPINEPHRINE
     Dosage: 0.3MG/0.3ML
     Route: 065
     Dates: start: 20131004
  9. VALSARTAN OHM LABORATORIES [Suspect]
     Active Substance: VALSARTAN
     Indication: HYPERTENSION
     Route: 048
     Dates: start: 20141022, end: 20160420
  10. AMLODIPINE BESYLATE. [Concomitant]
     Active Substance: AMLODIPINE BESYLATE
     Route: 048
     Dates: start: 20140818
  11. ZYRTEC [Concomitant]
     Active Substance: CETIRIZINE HYDROCHLORIDE
     Route: 065
  12. VALSARTAN SOLCO [Suspect]
     Active Substance: VALSARTAN
     Indication: HYPERTENSION
     Route: 048
     Dates: start: 20171217, end: 20180810
  13. VALSARTAN CAMBER [Suspect]
     Active Substance: VALSARTAN
     Route: 048
     Dates: start: 20160507, end: 20171110
  14. NYSTATIN. [Concomitant]
     Active Substance: NYSTATIN
     Dosage: TO AFFECTED AREAS
     Route: 061
     Dates: start: 20120905
  15. NYSTATIN. [Concomitant]
     Active Substance: NYSTATIN
     Route: 065
     Dates: start: 20120131, end: 20140425
  16. FLUTICASONE PROPIONATE. [Concomitant]
     Active Substance: FLUTICASONE PROPIONATE
     Dosage: 50MCG/ACT, 2 SPRAYS IN EACH NOSTRIL ONCE DAILY
     Dates: start: 20160307

REACTIONS (6)
  - Metastases to peritoneum [Not Recovered/Not Resolved]
  - Metastases to abdominal wall [Not Recovered/Not Resolved]
  - Intestinal obstruction [Not Recovered/Not Resolved]
  - Metastases to liver [Not Recovered/Not Resolved]
  - Adenocarcinoma of colon [Not Recovered/Not Resolved]
  - Metastases to ovary [Not Recovered/Not Resolved]
